FAERS Safety Report 15481501 (Version 1)
Quarter: 2018Q4

REPORT INFORMATION
  Report Type: Spontaneous
  Country: US (occurrence: US)
  Receive Date: 20181010
  Receipt Date: 20181010
  Transmission Date: 20190205
  Serious: Yes (Hospitalization, Other)
  Sender: FDA-Public Use
  Company Number: US-AUROBINDO-AUR-APL-2018-010269

PATIENT
  Age: 57 Year
  Sex: Male

DRUGS (1)
  1. CLINDAMYCIN HYDROCHLORIDE CAPSULES USP 150 MG [Suspect]
     Active Substance: CLINDAMYCIN HYDROCHLORIDE
     Indication: TOOTH INFECTION
     Dosage: UNK
     Route: 065
     Dates: start: 20161004, end: 201610

REACTIONS (2)
  - Hypersensitivity [Not Recovered/Not Resolved]
  - Stevens-Johnson syndrome [Not Recovered/Not Resolved]

NARRATIVE: CASE EVENT DATE: 20161005
